FAERS Safety Report 8008261-7 (Version None)
Quarter: 2011Q4

REPORT INFORMATION
  Report Type: 
  Country: None (occurrence: None)
  Receive Date: 20111227
  Receipt Date: 20111226
  Transmission Date: 20120403
  Serious: Yes (Death, Other)
  Sender: FDA-Public Use
  Company Number: JP-BAYER-JP-2007-034172

PATIENT
  Age: 52 Year
  Sex: Female
  Weight: 35 kg

DRUGS (23)
  1. MAGNEVIST [Suspect]
     Indication: ANGIOGRAM
     Route: 042
     Dates: start: 20030708, end: 20030708
  2. OMNISCAN [Suspect]
     Route: 042
     Dates: start: 20050316, end: 20050316
  3. LEVOTHYROXINE SODIUM [Concomitant]
     Indication: HYPOTHYROIDISM
     Route: 048
     Dates: start: 20030101
  4. HEPARIN CALCIUM [Concomitant]
     Route: 065
     Dates: start: 20050513, end: 20050518
  5. MAGNEVIST [Suspect]
     Indication: AORTIC STENOSIS
     Route: 042
     Dates: start: 20040317, end: 20040317
  6. MAGNEVIST [Suspect]
     Route: 042
     Dates: start: 20041110, end: 20041110
  7. OMNISCAN [Suspect]
     Route: 042
     Dates: start: 20050803, end: 20050803
  8. PREDNISOLONE [Concomitant]
     Indication: SYSTEMIC LUPUS ERYTHEMATOSUS
     Route: 048
     Dates: start: 19940101
  9. PURSENNIDE [Concomitant]
     Indication: CONSTIPATION
     Route: 048
     Dates: start: 19970101
  10. MAGNEVIST [Suspect]
     Route: 042
     Dates: start: 20040707, end: 20040707
  11. LANSOPRAZOLE [Concomitant]
     Indication: PEPTIC ULCER
     Route: 048
     Dates: start: 20010101
  12. OMNISCAN [Suspect]
     Indication: NUCLEAR MAGNETIC RESONANCE IMAGING
     Route: 042
     Dates: start: 20030924, end: 20030924
  13. OMNISCAN [Suspect]
     Route: 042
     Dates: start: 20031126, end: 20031126
  14. OMNISCAN [Suspect]
     Route: 042
     Dates: start: 20051221, end: 20051221
  15. LOSARTAN POTASSIUM [Concomitant]
     Route: 048
     Dates: start: 20040101
  16. LIDOCAINE [Concomitant]
     Route: 061
     Dates: start: 20020101
  17. RENAGEL [Concomitant]
     Route: 048
     Dates: start: 20040101
  18. MAGNEVIST [Suspect]
     Dosage: 15 ML, ONCE
     Route: 042
     Dates: start: 20050525, end: 20050525
  19. OMNISCAN [Suspect]
     Route: 042
     Dates: start: 20050909, end: 20050909
  20. MAGNEVIST [Suspect]
     Indication: NUCLEAR MAGNETIC RESONANCE IMAGING
     Route: 042
     Dates: start: 20030514, end: 20030514
  21. MAGNEVIST [Suspect]
     Dosage: 15 ML, ONCE
     Route: 042
     Dates: start: 20050830, end: 20050830
  22. DIASTASE [Concomitant]
     Route: 048
     Dates: start: 20040101
  23. MAGNEVIST [Suspect]
     Dosage: 15 ML, ONCE
     Route: 042
     Dates: start: 20041229, end: 20041229

REACTIONS (2)
  - NEPHROGENIC SYSTEMIC FIBROSIS [None]
  - PNEUMONIA [None]
